FAERS Safety Report 17989222 (Version 1)
Quarter: 2020Q3

REPORT INFORMATION
  Report Type: Spontaneous
  Country: US (occurrence: US)
  Receive Date: 20200707
  Receipt Date: 20200707
  Transmission Date: 20201103
  Serious: Yes (Life-Threatening, Hospitalization)
  Sender: FDA-Public Use
  Company Number: US-MYLANLABS-2020M1060794

PATIENT
  Age: 85 Year
  Sex: Female

DRUGS (2)
  1. LINEZOLID. [Suspect]
     Active Substance: LINEZOLID
     Indication: WOUND INFECTION BACTERIAL
     Dosage: UNK
     Route: 065
  2. CEFEPIME [Concomitant]
     Active Substance: CEFEPIME HYDROCHLORIDE
     Indication: WOUND INFECTION BACTERIAL
     Route: 065

REACTIONS (3)
  - Thrombocytopenia [Recovering/Resolving]
  - Lactic acidosis [Recovered/Resolved]
  - Toxicity to various agents [Recovering/Resolving]
